FAERS Safety Report 7454462-6 (Version None)
Quarter: 2011Q2

REPORT INFORMATION
  Report Type: 
  Country: None (occurrence: None)
  Receive Date: 20110425
  Receipt Date: 20110414
  Transmission Date: 20111010
  Serious: Yes (Hospitalization)
  Sender: FDA-Public Use
  Company Number: 2009AC000107

PATIENT
  Age: 72 Year
  Sex: Male

DRUGS (38)
  1. SIMVASTATIN [Concomitant]
  2. RHYTHMOL [Concomitant]
  3. ASPIRIN [Concomitant]
  4. CARDIZEM [Concomitant]
  5. CATAPRES [Concomitant]
  6. DIGOXIN [Suspect]
     Dosage: 0.25 MG;QD;PO
     Route: 048
     Dates: start: 19961201, end: 20090601
  7. GLIMEPIRIDE [Concomitant]
  8. FINASTERIDE [Concomitant]
  9. GLYBURIDE [Concomitant]
  10. ATENOLOL [Concomitant]
  11. LISINOPRIL [Concomitant]
  12. ACCUPRIL [Concomitant]
  13. DIGOXIN [Suspect]
     Dosage: PO
     Route: 048
  14. ASPIRIN [Concomitant]
  15. JANUVIA [Concomitant]
  16. FLOMAX [Concomitant]
  17. GLUCOTROL [Concomitant]
  18. LEVAGUIN [Concomitant]
  19. CLONIIDINE [Concomitant]
  20. DILTIAZEPAM [Concomitant]
  21. NIASPAN [Concomitant]
  22. LISINOPRIL [Concomitant]
  23. AMARYL [Concomitant]
  24. GLUCOPHAGE [Concomitant]
  25. BLOOD PRESSURE MEDICATION [Concomitant]
  26. WARFARIN SODIUM [Concomitant]
  27. METFORMIN HCL [Concomitant]
  28. LISINOPRIL [Concomitant]
  29. CARVEDILOL [Concomitant]
  30. COREG [Concomitant]
  31. LIPITIOR [Concomitant]
  32. NIASPAN [Concomitant]
  33. GLYBURIDE [Concomitant]
  34. ASPIRIN [Concomitant]
  35. TIAZAC [Concomitant]
  36. HYDROCHLOROTHIAZIDE [Concomitant]
  37. LOVENOX [Concomitant]
  38. PRAVACHOL [Concomitant]

REACTIONS (59)
  - MULTIPLE INJURIES [None]
  - SPONDYLOLYSIS [None]
  - FACET JOINT SYNDROME [None]
  - SQUAMOUS CELL CARCINOMA OF SKIN [None]
  - MALAISE [None]
  - AORTIC VALVE STENOSIS [None]
  - MYOCARDIAL INFARCTION [None]
  - AORTIC ARTERIOSCLEROSIS [None]
  - MUSCLE STRAIN [None]
  - BOWEL MOVEMENT IRREGULARITY [None]
  - MOBILITY DECREASED [None]
  - MANIA [None]
  - HYPOGLYCAEMIA [None]
  - ANXIETY [None]
  - DYSPHEMIA [None]
  - DIABETES MELLITUS INADEQUATE CONTROL [None]
  - CEREBELLAR INFARCTION [None]
  - HYPOAESTHESIA [None]
  - BALANCE DISORDER [None]
  - ASTHENIA [None]
  - PRODUCT QUALITY ISSUE [None]
  - VIITH NERVE PARALYSIS [None]
  - BASAL CELL CARCINOMA [None]
  - SOMATOFORM DISORDER [None]
  - JOINT CONTRACTURE [None]
  - INTERNATIONAL NORMALISED RATIO INCREASED [None]
  - LACUNAR INFARCTION [None]
  - AORTIC ANEURYSM [None]
  - TOXICITY TO VARIOUS AGENTS [None]
  - URINARY TRACT INFECTION [None]
  - SYNCOPE [None]
  - BLOOD TRIGLYCERIDES INCREASED [None]
  - LISTLESS [None]
  - PAIN [None]
  - THALAMIC INFARCTION [None]
  - HEMIPARESIS [None]
  - BLOOD PRESSURE INCREASED [None]
  - OSTEOARTHRITIS [None]
  - LEFT VENTRICULAR DYSFUNCTION [None]
  - GAIT DISTURBANCE [None]
  - BLOOD CHOLESTEROL INCREASED [None]
  - CEREBROVASCULAR ACCIDENT [None]
  - DYSARTHRIA [None]
  - LEFT VENTRICULAR HYPERTROPHY [None]
  - ATRIAL FIBRILLATION [None]
  - MENTAL STATUS CHANGES [None]
  - VISION BLURRED [None]
  - CHEST PAIN [None]
  - ECG SIGNS OF MYOCARDIAL ISCHAEMIA [None]
  - FALL [None]
  - LOSS OF PROPRIOCEPTION [None]
  - HYPOTENSION [None]
  - DIZZINESS [None]
  - PROSTATITIS [None]
  - JOINT DISLOCATION [None]
  - PYREXIA [None]
  - FATIGUE [None]
  - TINNITUS [None]
  - OVERDOSE [None]
